FAERS Safety Report 17729107 (Version 1)
Quarter: 2020Q2

REPORT INFORMATION
  Report Type: Spontaneous
  Country: DE (occurrence: DE)
  Receive Date: 20200430
  Receipt Date: 20200430
  Transmission Date: 20200714
  Serious: Yes (Hospitalization)
  Sender: FDA-Public Use
  Company Number: DE-TEVA-2020-DE-1227577

PATIENT
  Age: 64 Year
  Sex: Male

DRUGS (6)
  1. PANTOPRAZOL [Concomitant]
     Active Substance: PANTOPRAZOLE SODIUM
     Dosage: 40 MILLIGRAM DAILY; 1-0-0-0
  2. METOPROLOL. [Concomitant]
     Active Substance: METOPROLOL
     Dosage: 95 MILLIGRAM DAILY; 47.5 MG, 1-0-1-0
  3. ATORVASTATIN [Concomitant]
     Active Substance: ATORVASTATIN
     Dosage: 20 MILLIGRAM DAILY; 0-0-1-0
  4. CLOPIDOGREL [Suspect]
     Active Substance: CLOPIDOGREL BISULFATE
     Dosage: 75 MILLIGRAM DAILY; 0-1-0-0
  5. HEPAXANE 6,000 IU (60 MG)/0.6 ML INJEKTIONSLOSUNG [Suspect]
     Active Substance: ENOXAPARIN SODIUM
     Dosage: 120 MILLIGRAM DAILY; 60 MG, 1-0-1-0
     Route: 058
  6. CANDESARTAN. [Concomitant]
     Active Substance: CANDESARTAN
     Dosage: 8 MILLIGRAM DAILY; 1-0-0-0

REACTIONS (3)
  - Haematochezia [Unknown]
  - Anaemia [Unknown]
  - Pallor [Unknown]
